FAERS Safety Report 4595946-8 (Version None)
Quarter: 2005Q1

REPORT INFORMATION
  Report Type: 
  Country: None (occurrence: None)
  Receive Date: 20050225
  Receipt Date: 20050215
  Transmission Date: 20050727
  Serious: Yes (Life-Threatening, Hospitalization)
  Sender: FDA-Public Use
  Company Number: HQWYE394517FEB05

PATIENT
  Age: 44 Year
  Sex: Male

DRUGS (5)
  1. ARTANE [Suspect]
     Indication: SCHIZOPHRENIA
     Dosage: 6 MG 1X PER 1 DAY, ORAL
     Route: 048
     Dates: start: 20020401, end: 20050105
  2. BUFFERIN [Concomitant]
  3. RISPERDAL [Concomitant]
  4. VEGETAMIN A (CHLORPROMAZINE HYDROCHLORIDE/PHENOBARBITAL/PROMETHAZINE) [Concomitant]
  5. ROHYPNOL (FLUNITRAZEPAM) [Concomitant]

REACTIONS (4)
  - BLOOD URIC ACID INCREASED [None]
  - DEPRESSED LEVEL OF CONSCIOUSNESS [None]
  - DRUG INEFFECTIVE [None]
  - RHABDOMYOLYSIS [None]
